FAERS Safety Report 10387133 (Version 1)
Quarter: 2014Q3

REPORT INFORMATION
  Report Type: Spontaneous
  Country: US (occurrence: None)
  Receive Date: 20140814
  Receipt Date: 20140814
  Transmission Date: 20150326
  Serious: Yes (Life-Threatening, Hospitalization)
  Sender: FDA-Public Use
  Company Number: None

PATIENT
  Age: 83 Year
  Sex: Female
  Weight: 49.9 kg

DRUGS (12)
  1. ISOCORB MONO [Concomitant]
  2. RANITIDINE [Concomitant]
     Active Substance: RANITIDINE\RANITIDINE HYDROCHLORIDE
  3. MULTI VITEMIN [Concomitant]
  4. SIMVASTIN [Concomitant]
     Active Substance: SIMVASTATIN
  5. DIOVAN [Concomitant]
     Active Substance: VALSARTAN
  6. CALCIUM [Concomitant]
     Active Substance: CALCIUM
  7. CITRATE + D3 [Concomitant]
  8. SPECTRAVITE SENIOR [Concomitant]
  9. CLOPIDOGREL [Suspect]
     Active Substance: CLOPIDOGREL BISULFATE
     Indication: ANTICOAGULANT THERAPY
     Route: 048
  10. PLAVIX [Concomitant]
     Active Substance: CLOPIDOGREL BISULFATE
  11. METOPROLOL [Concomitant]
     Active Substance: METOPROLOL
  12. NORVASC [Concomitant]
     Active Substance: AMLODIPINE BESYLATE

REACTIONS (2)
  - Gastrointestinal ulcer [None]
  - Haemorrhage [None]

NARRATIVE: CASE EVENT DATE: 2009
